FAERS Safety Report 8248679-0 (Version None)
Quarter: 2012Q1

REPORT INFORMATION
  Report Type: 
  Country: None (occurrence: None)
  Receive Date: 20120331
  Receipt Date: 20120322
  Transmission Date: 20120608
  Serious: Yes (Other)
  Sender: FDA-Public Use
  Company Number: TR-ACCORD-012898

PATIENT

DRUGS (2)
  1. SIROLIMUS [Suspect]
     Route: 064
  2. TACROLIMUS [Suspect]
     Route: 064

REACTIONS (2)
  - FOETAL DISTRESS SYNDROME [None]
  - FOETAL EXPOSURE TIMING UNSPECIFIED [None]
